FAERS Safety Report 17958074 (Version 2)
Quarter: 2020Q3

REPORT INFORMATION
  Report Type: Report from Study
  Country: CA (occurrence: CA)
  Receive Date: 20200629
  Receipt Date: 20200715
  Transmission Date: 20201103
  Serious: Yes (Other)
  Sender: FDA-Public Use
  Company Number: CA-ASTRAZENECA-2020SE78480

PATIENT
  Age: 16775 Day
  Sex: Female

DRUGS (6)
  1. VENTOLIN [Concomitant]
     Active Substance: ALBUTEROL SULFATE
  2. NUCALA [Concomitant]
     Active Substance: MEPOLIZUMAB
  3. FASENRA [Suspect]
     Active Substance: BENRALIZUMAB
     Indication: ASTHMA
     Dosage: 30.0MG UNKNOWN
     Route: 058
     Dates: start: 20190828
  4. SYMBICORT [Concomitant]
     Active Substance: BUDESONIDE\FORMOTEROL FUMARATE DIHYDRATE
  5. MULTIVITAMINS [Concomitant]
     Active Substance: VITAMINS
  6. BIOTIN GEL [Concomitant]

REACTIONS (9)
  - Urticaria [Not Recovered/Not Resolved]
  - Hypersensitivity [Not Recovered/Not Resolved]
  - Injection site urticaria [Recovering/Resolving]
  - Wheezing [Not Recovered/Not Resolved]
  - Allergy to chemicals [Unknown]
  - Injection site erythema [Unknown]
  - Pruritus [Not Recovered/Not Resolved]
  - Injection site pruritus [Recovering/Resolving]
  - Drug ineffective [Unknown]

NARRATIVE: CASE EVENT DATE: 20200615
